FAERS Safety Report 5157151-6 (Version None)
Quarter: 2006Q4

REPORT INFORMATION
  Report Type: 
  Country: None (occurrence: None)
  Receive Date: 20061127
  Receipt Date: 20061016
  Transmission Date: 20070319
  Serious: Yes (Death, Other)
  Sender: FDA-Public Use
  Company Number: GB-BRISTOL-MYERS SQUIBB COMPANY-13554704

PATIENT
  Age: 35 Year
  Sex: Female

DRUGS (7)
  1. ERBITUX [Suspect]
     Indication: METASTATIC NEOPLASM
     Route: 041
     Dates: start: 20060131, end: 20061006
  2. AVASTIN [Suspect]
     Indication: METASTATIC NEOPLASM
     Route: 041
     Dates: start: 20060316, end: 20060922
  3. DILTIAZEM HCL [Concomitant]
     Indication: DRUG USE FOR UNKNOWN INDICATION
  4. SALBUTAMOL [Concomitant]
     Indication: DRUG USE FOR UNKNOWN INDICATION
  5. CAPECITABINE [Concomitant]
     Indication: METASTATIC NEOPLASM
     Route: 041
     Dates: start: 20050427, end: 20060427
  6. OXALIPLATIN [Concomitant]
     Indication: METASTATIC NEOPLASM
     Dates: start: 20050427, end: 20060427
  7. IRINOTECAN [Concomitant]
     Indication: DISEASE PROGRESSION
     Dates: start: 20060908, end: 20060922

REACTIONS (2)
  - INTERSTITIAL LUNG DISEASE [None]
  - LYMPHANGITIS [None]
